FAERS Safety Report 24890845 (Version 2)
Quarter: 2025Q1

REPORT INFORMATION
  Report Type: Spontaneous
  Country: US (occurrence: US)
  Receive Date: 20250127
  Receipt Date: 20250219
  Transmission Date: 20250409
  Serious: Yes (Life-Threatening, Other)
  Sender: ALEXION PHARMACEUTICALS
  Company Number: US-ASTRAZENECA-202412USA011542US

PATIENT
  Weight: 74.739 kg

DRUGS (11)
  1. FASLODEX [Suspect]
     Active Substance: FULVESTRANT
     Route: 065
  2. FASLODEX [Suspect]
     Active Substance: FULVESTRANT
  3. IBRANCE [Suspect]
     Active Substance: PALBOCICLIB
     Indication: Bone neoplasm
     Route: 065
  4. IBRANCE [Suspect]
     Active Substance: PALBOCICLIB
     Indication: Breast cancer female
  5. IBRANCE [Suspect]
     Active Substance: PALBOCICLIB
  6. IBRANCE [Suspect]
     Active Substance: PALBOCICLIB
     Dosage: FOR 21 DAYS/OFF FOR 7 DAYS
  7. PALBOCICLIB [Suspect]
     Active Substance: PALBOCICLIB
     Indication: Bone neoplasm
     Route: 065
  8. PALBOCICLIB [Suspect]
     Active Substance: PALBOCICLIB
     Indication: Breast cancer female
  9. PALBOCICLIB [Suspect]
     Active Substance: PALBOCICLIB
  10. PALBOCICLIB [Suspect]
     Active Substance: PALBOCICLIB
  11. PALBOCICLIB [Suspect]
     Active Substance: PALBOCICLIB
     Dosage: FOR 21 DAYS/OFF FOR 7 DAYS

REACTIONS (24)
  - Neoplasm malignant [Unknown]
  - Multimorbidity [Unknown]
  - Bone cancer [Unknown]
  - Breast cancer female [Unknown]
  - Metastases to bone [Unknown]
  - Leukopenia [Unknown]
  - Thrombocytopenia [Unknown]
  - Metastatic neoplasm [Unknown]
  - Intestinal varices [Unknown]
  - Hepatic cirrhosis [Unknown]
  - Arthralgia [Unknown]
  - Venous hypertension [Unknown]
  - Platelet count decreased [Unknown]
  - Neutrophil count decreased [Unknown]
  - Body mass index increased [Unknown]
  - Hepatic steatosis [Unknown]
  - Thrombopoietin level abnormal [Unknown]
  - Hypersplenism [Unknown]
  - Dyspnoea [Unknown]
  - Pyrexia [Unknown]
  - Chills [Unknown]
  - Fatigue [Unknown]
  - Nausea [Unknown]
  - Vomiting [Unknown]
